FAERS Safety Report 24340972 (Version 3)
Quarter: 2024Q4

REPORT INFORMATION
  Report Type: Spontaneous
  Country: CN (occurrence: CN)
  Receive Date: 20240919
  Receipt Date: 20241004
  Transmission Date: 20250115
  Serious: Yes (Other)
  Sender: JAZZ
  Company Number: CN-PHARMAMAR-2024PM000735

PATIENT
  Age: 67 Year
  Sex: Male
  Weight: 56 kg

DRUGS (5)
  1. ZEPZELCA [Suspect]
     Active Substance: LURBINECTEDIN
     Indication: Small cell lung cancer
     Dosage: 5 MILLIGRAM
     Route: 042
     Dates: start: 20240818, end: 20240818
  2. DEXTROSE [Concomitant]
     Active Substance: DEXTROSE MONOHYDRATE
     Dosage: UNK
     Dates: start: 20240818
  3. HUA CHAN SU [Concomitant]
     Indication: Small cell lung cancer
     Dosage: UNK
     Dates: start: 20240817, end: 20240821
  4. ONDANSETRON [Concomitant]
     Active Substance: ONDANSETRON
     Indication: Antiallergic therapy
     Dosage: UNK
     Dates: start: 20240817, end: 20240821
  5. ONDANSETRON [Concomitant]
     Active Substance: ONDANSETRON
     Indication: Antiemetic supportive care

REACTIONS (1)
  - Suspected drug-induced liver injury [Recovering/Resolving]

NARRATIVE: CASE EVENT DATE: 20240819
